FAERS Safety Report 4545194-2 (Version None)
Quarter: 2005Q1

REPORT INFORMATION
  Report Type: 
  Country: None (occurrence: None)
  Receive Date: 20050103
  Receipt Date: 20041222
  Transmission Date: 20050727
  Serious: Yes (Other)
  Sender: FDA-Public Use
  Company Number: 2004119096

PATIENT
  Sex: Male

DRUGS (4)
  1. GABAPENTIN [Suspect]
     Indication: ILL-DEFINED DISORDER
  2. CARBAMAZEPINE [Concomitant]
  3. ANTIEPILEPTICS [Concomitant]
  4. AMITRIPTYLINE [Concomitant]

REACTIONS (1)
  - HEPATIC FAILURE [None]
